FAERS Safety Report 13447629 (Version 1)
Quarter: 2017Q2

REPORT INFORMATION
  Report Type: Spontaneous
  Country: US (occurrence: US)
  Receive Date: 20170414
  Receipt Date: 20170414
  Transmission Date: 20170830
  Serious: Yes (Hospitalization)
  Sender: FDA-Public Use
  Company Number: None

PATIENT
  Age: 70 Year
  Sex: Male

DRUGS (9)
  1. ZYTIGA [Suspect]
     Active Substance: ABIRATERONE ACETATE
     Indication: PROSTATE CANCER
     Dosage: 1000 MG EVERY MORNING BY MOUTH ON AN EMPTY STOMACH
     Route: 048
     Dates: start: 201612
  2. TAMSULOSIN [Concomitant]
     Active Substance: TAMSULOSIN
  3. CYCLOBENZAPR [Concomitant]
     Active Substance: CYCLOBENZAPRINE
  4. PREDNISONE. [Concomitant]
     Active Substance: PREDNISONE
  5. LUPRON DEPOT [Concomitant]
     Active Substance: LEUPROLIDE ACETATE
  6. ASPIRIN. [Concomitant]
     Active Substance: ASPIRIN
  7. XGEVA [Concomitant]
     Active Substance: DENOSUMAB
  8. CIPROFLOXACN [Concomitant]
     Active Substance: CIPROFLOXACIN
  9. LISINOPRIL. [Concomitant]
     Active Substance: LISINOPRIL

REACTIONS (2)
  - Gingival disorder [None]
  - Abscess [None]

NARRATIVE: CASE EVENT DATE: 20170401
